FAERS Safety Report 6760334-2 (Version None)
Quarter: 2010Q2

REPORT INFORMATION
  Report Type: 
  Country: None (occurrence: None)
  Receive Date: 20100608
  Receipt Date: 20100526
  Transmission Date: 20101027
  Serious: Yes (Hospitalization, Other)
  Sender: FDA-Public Use
  Company Number: US-PURDUE-USA_2007_0028620

PATIENT
  Sex: Male
  Weight: 82.993 kg

DRUGS (5)
  1. OXYCONTIN [Suspect]
     Indication: PAIN
     Dosage: 40 MG, SEE TEXT
     Route: 048
     Dates: start: 20040101
  2. CANNABIS [Suspect]
     Indication: DRUG ABUSE
  3. OXYCODONE HCL [Concomitant]
     Indication: BREAKTHROUGH PAIN
     Dosage: 5 MG, SEE TEXT
  4. KADIAN [Concomitant]
     Indication: PAIN
     Dates: start: 20070801
  5. ALPRAZOLAM [Concomitant]
     Dosage: .5 MG, UNK

REACTIONS (44)
  - ABDOMINAL PAIN UPPER [None]
  - ACTIVITIES OF DAILY LIVING IMPAIRED [None]
  - AGITATION [None]
  - AMNESIA [None]
  - ANHEDONIA [None]
  - ANXIETY [None]
  - BRUXISM [None]
  - CHILLS [None]
  - CONFUSIONAL STATE [None]
  - DECREASED APPETITE [None]
  - DELUSIONAL DISORDER, UNSPECIFIED TYPE [None]
  - DEPRESSION [None]
  - DIARRHOEA [None]
  - DRUG DEPENDENCE [None]
  - DRUG WITHDRAWAL SYNDROME [None]
  - DYSARTHRIA [None]
  - DYSENTERY [None]
  - DYSKINESIA [None]
  - ERECTILE DYSFUNCTION [None]
  - EYE PAIN [None]
  - FATIGUE [None]
  - FEELING COLD [None]
  - HEADACHE [None]
  - HEPATITIS [None]
  - HYPERTENSION [None]
  - INCORRECT DOSE ADMINISTERED [None]
  - INSOMNIA [None]
  - INTENTIONAL DRUG MISUSE [None]
  - MENTAL IMPAIRMENT [None]
  - OBSESSIVE-COMPULSIVE DISORDER [None]
  - PAIN [None]
  - PAIN IN EXTREMITY [None]
  - PANCREATITIS [None]
  - PARANOIA [None]
  - PRURITUS [None]
  - PYREXIA [None]
  - RESPIRATORY TRACT CONGESTION [None]
  - SKIN EXFOLIATION [None]
  - STRESS [None]
  - SUBSTANCE ABUSE [None]
  - SUICIDAL IDEATION [None]
  - TREMOR [None]
  - VISION BLURRED [None]
  - VOMITING [None]
